FAERS Safety Report 6980218-4 (Version None)
Quarter: 2010Q3

REPORT INFORMATION
  Report Type: 
  Country: None (occurrence: None)
  Receive Date: 20100908
  Receipt Date: 20100826
  Transmission Date: 20110219
  Serious: Yes (Other)
  Sender: FDA-Public Use
  Company Number: 2010SP046293

PATIENT
  Sex: Female

DRUGS (1)
  1. IMPLANON [Suspect]
     Indication: PRODUCT USED FOR UNKNOWN INDICATION
     Dates: start: 20080101, end: 20100826

REACTIONS (5)
  - CHOLECYSTOSTOMY [None]
  - DRUG EXPOSURE DURING PREGNANCY [None]
  - GASTRIC INFECTION [None]
  - GASTROOESOPHAGEAL REFLUX DISEASE [None]
  - PREGNANCY WITH IMPLANT CONTRACEPTIVE [None]
